FAERS Safety Report 9530292 (Version 1)
Quarter: 2013Q3

REPORT INFORMATION
  Report Type: Report from Study
  Country: US (occurrence: US)
  Receive Date: 20130917
  Receipt Date: 20130917
  Transmission Date: 20140515
  Serious: Yes (Other)
  Sender: FDA-Public Use
  Company Number: US-ABBVIE-13P-163-1145423-00

PATIENT
  Sex: Female

DRUGS (11)
  1. HUMIRA [Suspect]
     Indication: RHEUMATOID ARTHRITIS
     Dates: end: 201304
  2. CELEBREX [Concomitant]
     Indication: RHEUMATOID ARTHRITIS
  3. FOLIC ACID [Concomitant]
     Indication: RHEUMATOID ARTHRITIS
  4. METHOTREXATE [Concomitant]
     Indication: RHEUMATOID ARTHRITIS
  5. CALCIUM W/VITAMIN D [Concomitant]
     Indication: RHEUMATOID ARTHRITIS
  6. VITAMIN C [Concomitant]
     Indication: RHEUMATOID ARTHRITIS
  7. SYNTHROID [Concomitant]
     Indication: HYPOTHYROIDISM
  8. CITALOPRAM [Concomitant]
     Indication: DEPRESSION
  9. TYLENOL [Concomitant]
     Indication: SUPPLEMENTATION THERAPY
     Dosage: EVERY AM
  10. TYLENOL PM [Concomitant]
     Indication: SUPPLEMENTATION THERAPY
     Dosage: AT SLEEP
  11. MULTIVITAMIN [Concomitant]
     Indication: VITAMIN SUPPLEMENTATION

REACTIONS (7)
  - Cyst [Unknown]
  - Knee arthroplasty [Unknown]
  - Cyst [Recovered/Resolved]
  - Tenderness [Recovered/Resolved]
  - Cyst rupture [Recovered/Resolved]
  - Purulent discharge [Recovered/Resolved]
  - Pain [Recovered/Resolved]
